FAERS Safety Report 23602984 (Version 3)
Quarter: 2024Q1

REPORT INFORMATION
  Report Type: Spontaneous
  Country: US (occurrence: US)
  Receive Date: 20240306
  Receipt Date: 20240319
  Transmission Date: 20240410
  Serious: Yes (Hospitalization, Other)
  Sender: FDA-Public Use
  Company Number: US-EXELIXIS-CABO-24074053

PATIENT
  Age: 64 Year
  Sex: Male
  Weight: 83.9 kg

DRUGS (40)
  1. OPDIVO [Suspect]
     Active Substance: NIVOLUMAB
     Indication: Metastatic renal cell carcinoma
     Dates: start: 20220517, end: 20240210
  2. IPILIMUMAB [Suspect]
     Active Substance: IPILIMUMAB
     Indication: Metastatic renal cell carcinoma
     Dates: start: 20220215, end: 20220405
  3. IPILIMUMAB [Suspect]
     Active Substance: IPILIMUMAB
     Dates: start: 20220426, end: 20240123
  4. CABOMETYX [Suspect]
     Active Substance: CABOZANTINIB S-MALATE
     Indication: Metastatic renal cell carcinoma
     Dosage: 40 MG, QD
     Route: 048
     Dates: start: 20220517, end: 20240210
  5. EVEROLIMUS [Suspect]
     Active Substance: EVEROLIMUS
     Indication: Metastatic renal cell carcinoma
     Dosage: 5 MG, QD
     Route: 048
  6. LENVIMA [Suspect]
     Active Substance: LENVATINIB
     Indication: Metastatic renal cell carcinoma
     Dosage: 14 MG, QD
     Route: 048
  7. LENVIMA [Suspect]
     Active Substance: LENVATINIB
     Dates: start: 20240208
  8. PROVENTIL [Concomitant]
     Active Substance: ALBUTEROL
     Indication: Wheezing
  9. PROVENTIL [Concomitant]
     Active Substance: ALBUTEROL
     Indication: Dyspnoea
  10. VENTOLIN [Concomitant]
     Active Substance: ALBUTEROL SULFATE
     Indication: Wheezing
  11. VENTOLIN [Concomitant]
     Active Substance: ALBUTEROL SULFATE
     Indication: Dyspnoea
  12. FLUTICASONE PROPIONATE [Concomitant]
     Active Substance: FLUTICASONE PROPIONATE
     Indication: Wheezing
  13. FLUTICASONE PROPIONATE [Concomitant]
     Active Substance: FLUTICASONE PROPIONATE
     Indication: Dyspnoea
  14. CALCIUM;MAGNESIUM;ZINC [Concomitant]
     Indication: Product used for unknown indication
  15. VITAMIN D3 [Concomitant]
     Active Substance: CHOLECALCIFEROL
     Indication: Product used for unknown indication
  16. CLINDAGEL [Concomitant]
     Active Substance: CLINDAMYCIN PHOSPHATE
     Indication: Dermatitis acneiform
  17. CYANOCOBALAMIN [Concomitant]
     Active Substance: CYANOCOBALAMIN
     Indication: Product used for unknown indication
  18. DEXAMETHASONE [Concomitant]
     Active Substance: DEXAMETHASONE
     Indication: Product used for unknown indication
  19. LOPERAMIDE HYDROCHLORIDE [Concomitant]
     Active Substance: LOPERAMIDE HYDROCHLORIDE
     Indication: Diarrhoea
  20. NEXIUM I.V. [Concomitant]
     Active Substance: ESOMEPRAZOLE SODIUM
     Indication: Product used for unknown indication
  21. LEVOTHYROXINE SODIUM [Concomitant]
     Active Substance: LEVOTHYROXINE SODIUM
     Indication: Product used for unknown indication
  22. COZAAR [Concomitant]
     Active Substance: LOSARTAN POTASSIUM
     Indication: Product used for unknown indication
  23. MELATONIN [Concomitant]
     Active Substance: MELATONIN
     Indication: Product used for unknown indication
  24. NIACIN [Concomitant]
     Active Substance: NIACIN
     Indication: Product used for unknown indication
  25. ZOFRAN [Concomitant]
     Active Substance: ONDANSETRON HYDROCHLORIDE
     Indication: Nausea
  26. POMEGRANATE [PUNICA GRANATUM] [Concomitant]
     Indication: Product used for unknown indication
  27. PROBIOTIC [BIFIDOBACTERIUM BIFIDUM;BIFIDOBACTERIUM LACTIS;BIFIDOBACTER [Concomitant]
     Indication: Product used for unknown indication
  28. CRESTOR [Concomitant]
     Active Substance: ROSUVASTATIN CALCIUM
     Indication: Product used for unknown indication
  29. KENALOG [Concomitant]
     Active Substance: TRIAMCINOLONE ACETONIDE
     Indication: Product used for unknown indication
  30. VITAMIN A [Concomitant]
     Active Substance: VITAMIN A
     Indication: Product used for unknown indication
  31. GUAR GUM [Concomitant]
     Active Substance: GUAR GUM
     Indication: Product used for unknown indication
  32. PROTONIX [Concomitant]
     Active Substance: PANTOPRAZOLE SODIUM
     Indication: Product used for unknown indication
  33. ENOXAPARIN [Concomitant]
     Active Substance: ENOXAPARIN
     Indication: Product used for unknown indication
  34. ACETAMINOPHEN [Concomitant]
     Active Substance: ACETAMINOPHEN
     Indication: Product used for unknown indication
  35. POLYETHYLENE GLYCOLS [Concomitant]
     Active Substance: POLYETHYLENE GLYCOLS
     Indication: Product used for unknown indication
  36. ONDANSETRON HYDROCHLORIDE [Concomitant]
     Active Substance: ONDANSETRON HYDROCHLORIDE
     Indication: Product used for unknown indication
  37. VITAMIN E [Concomitant]
     Active Substance: .ALPHA.-TOCOPHEROL
     Indication: Product used for unknown indication
  38. DIPHENOXYLATE HYDROCHLORIDE AND ATROPINE SULFATE [Concomitant]
     Active Substance: ATROPINE SULFATE\DIPHENOXYLATE HYDROCHLORIDE
     Indication: Product used for unknown indication
  39. ESOMEPRAZOLE MAGNESIUM [Concomitant]
     Active Substance: ESOMEPRAZOLE\ESOMEPRAZOLE MAGNESIUM\ESOMEPRAZOLE MAGNESIUM DIHYDRATE
     Indication: Product used for unknown indication
  40. ROSUVASTATIN CALCIUM [Concomitant]
     Active Substance: ROSUVASTATIN CALCIUM
     Indication: Product used for unknown indication

REACTIONS (19)
  - Hypokalaemia [Recovering/Resolving]
  - Biliary obstruction [Recovered/Resolved]
  - Renal failure [Unknown]
  - Oedema mucosal [Unknown]
  - Malignant neoplasm progression [Unknown]
  - Metastases to skin [Unknown]
  - Metastases to pancreas [Unknown]
  - Rash pruritic [Unknown]
  - Diarrhoea [Recovered/Resolved]
  - Acne [Unknown]
  - Thyroiditis [Unknown]
  - Intrapulmonary lymphadenopathy [Unknown]
  - Nodule [Unknown]
  - Faeces pale [Recovered/Resolved]
  - Haemoptysis [Unknown]
  - Arthralgia [Recovering/Resolving]
  - Jaundice [Recovered/Resolved]
  - Eczema [Unknown]
  - Liver function test increased [Recovering/Resolving]

NARRATIVE: CASE EVENT DATE: 20220405
